FAERS Safety Report 6438172-X (Version None)
Quarter: 2009Q4

REPORT INFORMATION
  Report Type: 
  Country: None (occurrence: None)
  Receive Date: 20091112
  Receipt Date: 20091102
  Transmission Date: 20100525
  Serious: No
  Sender: FDA-Public Use
  Company Number: DE-GILEAD-2009-0024786

PATIENT
  Sex: Male
  Weight: 90 kg

DRUGS (2)
  1. VIREAD [Suspect]
     Indication: HEPATITIS B
     Route: 048
     Dates: start: 20090923, end: 20091014
  2. LISINOPRIL [Concomitant]
     Indication: HYPERTENSION
     Route: 048

REACTIONS (3)
  - NAUSEA [None]
  - POLYURIA [None]
  - PRURITUS [None]
